FAERS Safety Report 8431049-X (Version None)
Quarter: 2012Q2

REPORT INFORMATION
  Report Type: 
  Country: None (occurrence: None)
  Receive Date: 20120612
  Receipt Date: 20120604
  Transmission Date: 20120825
  Serious: Yes (Hospitalization, Other)
  Sender: FDA-Public Use
  Company Number: US-BAXTER-2012BAX006988

PATIENT
  Sex: Female

DRUGS (1)
  1. DIANEAL [Suspect]
     Indication: PERITONEAL DIALYSIS
     Route: 033

REACTIONS (7)
  - MYOCARDITIS [None]
  - HIATUS HERNIA [None]
  - ANAEMIA [None]
  - GASTRITIS [None]
  - PNEUMONIA [None]
  - OESOPHAGEAL ULCER [None]
  - MYOCARDIAL INFARCTION [None]
